FAERS Safety Report 8376570-8 (Version None)
Quarter: 2012Q2

REPORT INFORMATION
  Report Type: 
  Country: None (occurrence: None)
  Receive Date: 20120522
  Receipt Date: 20120510
  Transmission Date: 20120825
  Serious: No
  Sender: FDA-Public Use
  Company Number: US-ASTRAZENECA-2012SE30736

PATIENT
  Sex: Female

DRUGS (3)
  1. NEXIUM [Concomitant]
     Route: 048
  2. PRILOSEC [Suspect]
     Route: 048
  3. PRILOSEC OTC [Suspect]
     Route: 048

REACTIONS (4)
  - ABDOMINAL DISCOMFORT [None]
  - HYPOACUSIS [None]
  - DRUG INEFFECTIVE [None]
  - CONDITION AGGRAVATED [None]
